FAERS Safety Report 6898807-4 (Version None)
Quarter: 2010Q3

REPORT INFORMATION
  Report Type: 
  Country: None (occurrence: None)
  Receive Date: 20100802
  Receipt Date: 20071128
  Transmission Date: 20110219
  Serious: No
  Sender: FDA-Public Use
  Company Number: US-PFIZER INC-2007100623

PATIENT

DRUGS (1)
  1. LYRICA [Suspect]
     Indication: HERPES ZOSTER
     Dates: start: 20071101

REACTIONS (1)
  - MOUTH ULCERATION [None]
